FAERS Safety Report 6111102-6 (Version None)
Quarter: 2009Q1

REPORT INFORMATION
  Report Type: 
  Country: None (occurrence: None)
  Receive Date: 20090309
  Receipt Date: 20090309
  Transmission Date: 20090719
  Serious: No
  Sender: FDA-Public Use
  Company Number: None

PATIENT
  Sex: Male
  Weight: 13.6079 kg

DRUGS (2)
  1. TRIAMINIC SRT [Suspect]
     Indication: NASAL CONGESTION
     Dosage: 1 TEASPOON EVERY 4 HOURS PO
     Route: 048
     Dates: start: 20090308, end: 20090308
  2. TRIAMINIC SRT [Suspect]
     Indication: PULMONARY CONGESTION
     Dosage: 1 TEASPOON EVERY 4 HOURS PO
     Route: 048
     Dates: start: 20090308, end: 20090308

REACTIONS (1)
  - URTICARIA [None]
